FAERS Safety Report 6349993-6 (Version None)
Quarter: 2009Q3

REPORT INFORMATION
  Report Type: 
  Country: None (occurrence: None)
  Receive Date: 20090911
  Receipt Date: 20090622
  Transmission Date: 20100115
  Serious: No
  Sender: FDA-Public Use
  Company Number: US-ABBOTT-06P-163-0348280-00

PATIENT
  Sex: Female
  Weight: 61.744 kg

DRUGS (5)
  1. HUMIRA [Suspect]
     Indication: RHEUMATOID ARTHRITIS
     Route: 058
     Dates: start: 20060901
  2. LYRICA [Concomitant]
     Indication: DRUG USE FOR UNKNOWN INDICATION
  3. PREDNISONE [Concomitant]
     Indication: DRUG USE FOR UNKNOWN INDICATION
  4. LEVOTHYROXINE SODIUM [Concomitant]
     Indication: DRUG USE FOR UNKNOWN INDICATION
  5. FOLIC ACID [Concomitant]
     Indication: DRUG USE FOR UNKNOWN INDICATION

REACTIONS (1)
  - INCORRECT DOSE ADMINISTERED [None]
